FAERS Safety Report 8550330-7 (Version None)
Quarter: 2012Q3

REPORT INFORMATION
  Report Type: 
  Country: None (occurrence: None)
  Receive Date: 20120730
  Receipt Date: 20120719
  Transmission Date: 20120928
  Serious: Yes (Hospitalization, Other)
  Sender: FDA-Public Use
  Company Number: CN-ASTRAZENECA-2010SE60978

PATIENT
  Age: 80 Year
  Sex: Male
  Weight: 55.8 kg

DRUGS (2)
  1. CASODEX [Suspect]
     Indication: PROSTATE CANCER
     Route: 048
     Dates: start: 20101213, end: 20101227
  2. ZOLADEX [Concomitant]
     Indication: PROSTATE CANCER
     Dosage: 3.6MG/28DAYS
     Route: 058
     Dates: start: 20101226, end: 20101227

REACTIONS (2)
  - HAEMATOCHEZIA [None]
  - HAEMATEMESIS [None]
